FAERS Safety Report 21442988 (Version 1)
Quarter: 2022Q4

REPORT INFORMATION
  Report Type: Spontaneous
  Country: FR (occurrence: FR)
  Receive Date: 20221012
  Receipt Date: 20221012
  Transmission Date: 20230112
  Serious: Yes (Death, Other)
  Sender: FDA-Public Use
  Company Number: FR-AFSSAPS-MP20223139

PATIENT
  Age: 93 Year
  Sex: Male
  Weight: 68 kg

DRUGS (1)
  1. PREDNISONE [Suspect]
     Active Substance: PREDNISONE
     Indication: Erysipelas
     Dosage: 35 MILLIGRAM, ONCE A DAY
     Route: 048
     Dates: start: 20220616, end: 20220623

REACTIONS (1)
  - Ulcer haemorrhage [Fatal]

NARRATIVE: CASE EVENT DATE: 20220623
